FAERS Safety Report 9574832 (Version 3)
Quarter: 2013Q4

REPORT INFORMATION
  Report Type: Spontaneous
  Country: AU (occurrence: AU)
  Receive Date: 20131001
  Receipt Date: 20131112
  Transmission Date: 20140711
  Serious: Yes (Other)
  Sender: FDA-Public Use
  Company Number: AU-ASTRAZENECA-2013SE71655

PATIENT
  Sex: Male

DRUGS (2)
  1. SYMBICORT TURBUHALER [Suspect]
     Dosage: 200/6, FREQUENCY UNKNOWN
     Route: 055
  2. SYMBICORT TURBUHALER [Suspect]
     Dosage: 200/6, UNKNOWN FREQUENCY
     Route: 055

REACTIONS (2)
  - Convulsion [Unknown]
  - Headache [Unknown]
